FAERS Safety Report 14726605 (Version 3)
Quarter: 2018Q4

REPORT INFORMATION
  Report Type: Spontaneous
  Country: CA (occurrence: CA)
  Receive Date: 20180406
  Receipt Date: 20181031
  Transmission Date: 20190204
  Serious: Yes (Hospitalization)
  Sender: FDA-Public Use
  Company Number: CA-MALLINCKRODT-T201801393

PATIENT
  Age: 58 Year
  Sex: Female

DRUGS (4)
  1. COCAINE [Suspect]
     Active Substance: COCAINE
     Indication: PRODUCT USED FOR UNKNOWN INDICATION
     Dosage: UNK
     Route: 065
  2. METHADOSE [Suspect]
     Active Substance: METHADONE HYDROCHLORIDE
     Dosage: 30 MG, QD
     Route: 065
  3. METHADOSE [Suspect]
     Active Substance: METHADONE HYDROCHLORIDE
     Dosage: 60 MG, QD
     Route: 065
  4. METHADOSE [Suspect]
     Active Substance: METHADONE HYDROCHLORIDE
     Indication: DRUG DEPENDENCE
     Dosage: 120 MG, QD (DAILY)
     Route: 065

REACTIONS (6)
  - Withdrawal syndrome [Unknown]
  - Respiratory failure [Unknown]
  - Drug effect incomplete [Unknown]
  - Drug use disorder [Unknown]
  - Drug abuse [Unknown]
  - Depressed level of consciousness [Unknown]
